FAERS Safety Report 8582963-6 (Version None)
Quarter: 2012Q3

REPORT INFORMATION
  Report Type: 
  Country: None (occurrence: None)
  Receive Date: 20120809
  Receipt Date: 20120731
  Transmission Date: 20120928
  Serious: Yes (Hospitalization)
  Sender: FDA-Public Use
  Company Number: BR-BRISTOL-MYERS SQUIBB COMPANY-16222135

PATIENT
  Age: 64 Year
  Sex: Female

DRUGS (10)
  1. NPH INSULIN [Concomitant]
     Dosage: 1DF=30IU AT MORNING.     10IU AT NIGHT
     Dates: start: 20090710
  2. CAPTOPRIL [Concomitant]
     Indication: HYPERTENSION
     Dates: start: 20050101
  3. ABATACEPT [Suspect]
     Indication: RHEUMATOID ARTHRITIS
     Dosage: 1DF=125MG/ML. INTERRUPTED ON 01NOV11
     Route: 058
     Dates: start: 20090122
  4. FOLIC ACID [Concomitant]
     Dates: start: 20080318
  5. METHOTREXATE [Suspect]
     Indication: RHEUMATOID ARTHRITIS
     Dates: start: 20080708
  6. METFORMIN HCL [Concomitant]
     Dates: start: 20090710
  7. PREDNISONE TAB [Suspect]
     Dates: start: 20080708
  8. AMARYL [Concomitant]
     Dates: start: 20090710
  9. AMIODARONE HCL [Concomitant]
     Indication: ARRHYTHMIA
     Dates: start: 20050101
  10. PROPRANOLOL [Concomitant]
     Indication: HYPERTENSION
     Dates: start: 20050101

REACTIONS (1)
  - VASCULITIS [None]
